FAERS Safety Report 13002483 (Version 1)
Quarter: 2016Q4

REPORT INFORMATION
  Report Type: Spontaneous
  Country: BR (occurrence: BR)
  Receive Date: 20161206
  Receipt Date: 20161206
  Transmission Date: 20170207
  Serious: Yes (Other)
  Sender: FDA-Public Use
  Company Number: BR-TORRENT-00003717

PATIENT
  Sex: Female

DRUGS (1)
  1. LAMITOR [Suspect]
     Active Substance: LAMOTRIGINE
     Indication: SYSTEMIC LUPUS ERYTHEMATOSUS
     Dosage: LAMITOR 100 MG THREE TABLETS DAILY/ORAL.
     Route: 048

REACTIONS (6)
  - Nausea [Unknown]
  - Off label use [Recovered/Resolved]
  - Dizziness [Unknown]
  - Seizure [Recovered/Resolved]
  - Headache [Unknown]
  - Dysphagia [Unknown]
